FAERS Safety Report 9378726 (Version 1)
Quarter: 2013Q3

REPORT INFORMATION
  Report Type: Spontaneous
  Country: US (occurrence: US)
  Receive Date: 20130702
  Receipt Date: 20130702
  Transmission Date: 20140515
  Serious: No
  Sender: FDA-Public Use
  Company Number: US-BIOGENIDEC-2013BI059190

PATIENT
  Age: 31 Year
  Sex: Female

DRUGS (2)
  1. AVONEX [Suspect]
     Indication: MULTIPLE SCLEROSIS
     Route: 030
     Dates: start: 20100808, end: 20110220
  2. TIZANIDINE [Concomitant]
     Indication: MUSCLE RELAXANT THERAPY

REACTIONS (1)
  - Central nervous system lesion [Recovered/Resolved]
